FAERS Safety Report 24753390 (Version 1)
Quarter: 2024Q4

REPORT INFORMATION
  Report Type: Spontaneous
  Country: BR (occurrence: BR)
  Receive Date: 20241219
  Receipt Date: 20241219
  Transmission Date: 20250115
  Serious: Yes (Hospitalization)
  Sender: INSUD PHARMA
  Company Number: BR-EXELTIS PHARMACEUTICAL HOLDING, S.L.-2412BR09578

PATIENT
  Age: 46 Year
  Sex: Female

DRUGS (1)
  1. DROSPIRENONE [Suspect]
     Active Substance: DROSPIRENONE
     Indication: Endometriosis
     Dosage: 1 DOSAGE FORM, QD
     Route: 048
     Dates: end: 20241206

REACTIONS (4)
  - Intermenstrual bleeding [Not Recovered/Not Resolved]
  - Malaise [Not Recovered/Not Resolved]
  - Product use issue [Unknown]
  - Product use in unapproved indication [Unknown]

NARRATIVE: CASE EVENT DATE: 20241122
